APPROVED DRUG PRODUCT: YUVEZZI
Active Ingredient: BRIMONIDINE TARTRATE; CARBACHOL
Strength: 0.1%;2.75%
Dosage Form/Route: SOLUTION/DROPS;OPHTHALMIC
Application: N220142 | Product #001
Applicant: VISUS THERAPEUTICS INC
Approved: Jan 28, 2026 | RLD: Yes | RS: Yes | Type: RX